FAERS Safety Report 6977251-5 (Version None)
Quarter: 2010Q3

REPORT INFORMATION
  Report Type: 
  Country: None (occurrence: None)
  Receive Date: 20100910
  Receipt Date: 20100903
  Transmission Date: 20110219
  Serious: Yes (Hospitalization)
  Sender: FDA-Public Use
  Company Number: IT-ELI_LILLY_AND_COMPANY-IT201009001145

PATIENT
  Sex: Female

DRUGS (4)
  1. BYETTA [Suspect]
     Indication: TYPE 2 DIABETES MELLITUS
     Dosage: 20 UG, DAILY (1/D)
     Route: 058
     Dates: start: 20091126, end: 20100731
  2. VOLTAREN [Concomitant]
     Indication: OSTEOARTHRITIS
     Dosage: 100 MG, DAILY (1/D)
     Route: 048
     Dates: start: 20090101
  3. METFORMIN HYDROCHLORIDE [Concomitant]
     Dosage: 1500 MG, UNKNOWN
     Route: 048
     Dates: start: 20100101, end: 20100731
  4. GLICLAZIDE [Concomitant]
     Dosage: 60 MG, UNKNOWN
     Route: 048
     Dates: start: 20100101, end: 20100731

REACTIONS (3)
  - DUODENAL ULCER HAEMORRHAGE [None]
  - GASTRITIS EROSIVE [None]
  - RENAL FAILURE ACUTE [None]
